FAERS Safety Report 4465010-7 (Version None)
Quarter: 2004Q4

REPORT INFORMATION
  Report Type: 
  Country: None (occurrence: None)
  Receive Date: 20041004
  Receipt Date: 20040618
  Transmission Date: 20050328
  Serious: No
  Sender: FDA-Public Use
  Company Number: 374161

PATIENT
  Age: 37 Year
  Sex: Female

DRUGS (3)
  1. COREG [Suspect]
     Dosage: 3.125MG THREE TIMES PER DAY
     Route: 048
  2. IRON SUPPLEMENT [Concomitant]
  3. BIRTH CONTROL PILL [Concomitant]

REACTIONS (1)
  - WEIGHT INCREASED [None]
